FAERS Safety Report 8914460 (Version 2)
Quarter: 2013Q1

REPORT INFORMATION
  Report Type: Spontaneous
  Country: US (occurrence: US)
  Receive Date: 20121116
  Receipt Date: 20130110
  Transmission Date: 20140127
  Serious: No
  Sender: FDA-Public Use
  Company Number: US-009507513-1210USA002694

PATIENT
  Age: 58 Year
  Sex: Female

DRUGS (4)
  1. PEGINTRON [Suspect]
     Indication: HEPATITIS C
     Dosage: 120 MICROGRAM, QW
     Route: 058
     Dates: start: 20120925
  2. RIBASPHERE [Suspect]
     Dosage: UNK
     Dates: start: 20120925
  3. LOTREL [Concomitant]
  4. NAPROXEN [Concomitant]

REACTIONS (2)
  - Vomiting [Unknown]
  - Abdominal discomfort [Unknown]
